FAERS Safety Report 9014927 (Version 1)
Quarter: 2013Q1

REPORT INFORMATION
  Report Type: Spontaneous
  Country: US (occurrence: None)
  Receive Date: 20130109
  Receipt Date: 20130109
  Transmission Date: 20140127
  Serious: Yes (Life-Threatening, Hospitalization, Disabling)
  Sender: FDA-Public Use
  Company Number: None

PATIENT
  Age: 53 Year
  Sex: Female
  Weight: 117.94 kg

DRUGS (1)
  1. LIPITOR [Suspect]
     Dates: start: 201211

REACTIONS (9)
  - Pain [None]
  - Abdominal pain [None]
  - Vomiting [None]
  - Rash [None]
  - Swelling [None]
  - Tenderness [None]
  - Heart rate abnormal [None]
  - Sensation of foreign body [None]
  - Feeling abnormal [None]
